FAERS Safety Report 6211177-X (Version None)
Quarter: 2009Q2

REPORT INFORMATION
  Report Type: 
  Country: None (occurrence: None)
  Receive Date: 20090602
  Receipt Date: 20090522
  Transmission Date: 20091009
  Serious: Yes (Hospitalization)
  Sender: FDA-Public Use
  Company Number: US-ROCHE-624716

PATIENT
  Sex: Male

DRUGS (16)
  1. CAPECITABINE [Suspect]
     Indication: COLON CANCER
     Dosage: 1500 MG AT AM AND 1500 MG AT PM; 14 DAYS ON AND 7 DAYS OFF; 8 CYCLES
     Route: 048
     Dates: start: 20090323
  2. OXALIPLATIN [Suspect]
     Indication: COLON CANCER
     Dosage: FORM: INFUSION; DAY 1 OF 3 WEEK CYCLE; 8 CYCLES
     Route: 042
  3. ASPIRIN [Concomitant]
     Indication: CORONARY ARTERY DISEASE
     Route: 048
  4. METOPROLOL SUCCINATE [Concomitant]
  5. ESOMEPRAZOLE MAGNESIUM [Concomitant]
     Route: 048
  6. SIMVASTATIN [Concomitant]
     Route: 048
  7. LASIX [Concomitant]
     Route: 048
  8. ISOSORBIDE MONONITRATE [Concomitant]
     Indication: CORONARY ARTERY DISEASE
     Route: 048
  9. LOPRESSOR [Concomitant]
     Indication: CORONARY ARTERY DISEASE
     Route: 048
  10. DIGOXIN [Concomitant]
     Route: 048
  11. LEVOTHYROXINE [Concomitant]
     Indication: HYPOTHYROIDISM
     Route: 048
  12. ZESTRIL [Concomitant]
     Indication: CORONARY ARTERY DISEASE
     Route: 048
  13. LANTUS [Concomitant]
     Dosage: DOSE: 90 UNITS Q AM
     Route: 058
  14. NOVOLOG [Concomitant]
     Dosage: DOSE: 5.15 UNITS BEFORE MEALS PRN
  15. BACLOFEN [Concomitant]
     Route: 048
  16. GLIPIZIDE [Concomitant]
     Route: 048

REACTIONS (3)
  - ACUTE MYOCARDIAL INFARCTION [None]
  - MYOCARDIAL INFARCTION [None]
  - PERCUTANEOUS CORONARY INTERVENTION [None]
